FAERS Safety Report 16889088 (Version 2)
Quarter: 2019Q4

REPORT INFORMATION
  Report Type: Spontaneous
  Country: GB (occurrence: GB)
  Receive Date: 20191007
  Receipt Date: 20191220
  Transmission Date: 20200122
  Serious: Yes (Other)
  Sender: FDA-Public Use
  Company Number: GB-TEVA-2019-GB-1117751

PATIENT
  Age: 71 Year
  Sex: Female
  Weight: 70 kg

DRUGS (7)
  1. LETROZOLE. [Concomitant]
     Active Substance: LETROZOLE
     Indication: BREAST CANCER
     Dosage: 1 DOSAGE FORMS
     Dates: start: 20181029
  2. CALCIUM CARBONATE. [Concomitant]
     Active Substance: CALCIUM CARBONATE
     Dosage: 2 DOSAGE FORMS
     Dates: start: 20181029
  3. XYLOCAINE [Concomitant]
     Active Substance: LIDOCAINE HYDROCHLORIDE
     Dosage: 1 ML
     Dates: start: 20190626, end: 20190627
  4. LEVOTHYROXINE. [Concomitant]
     Active Substance: LEVOTHYROXINE
     Indication: THYROID HORMONE REPLACEMENT THERAPY
     Dosage: MORNING, 1 DOSAGE FORMS
     Dates: start: 20181026
  5. ALENDRONIC ACID [Concomitant]
     Active Substance: ALENDRONIC ACID
     Dosage: STANDING UP ON AN EMPTY STOMAC.., 1 DOSAGE FORMS PER WEEK
     Dates: start: 20181029
  6. ATORVASTATIN [Suspect]
     Active Substance: ATORVASTATIN
     Dosage: NIGHT, 20 MG
     Dates: start: 20190626, end: 20190911
  7. FLUOROURACIL. [Concomitant]
     Active Substance: FLUOROURACIL
     Indication: SKIN LESION
     Dosage: APPLY THINLY ONCE OR TWICE DAILY FOR 4 WEEKS. FOLLOW INSTRUCTIONS LEAFLET.
     Dates: start: 20190813, end: 20190910

REACTIONS (1)
  - Drug-induced liver injury [Recovered/Resolved]

NARRATIVE: CASE EVENT DATE: 20190911
